FAERS Safety Report 25602714 (Version 1)
Quarter: 2025Q3

REPORT INFORMATION
  Report Type: Spontaneous
  Country: US (occurrence: US)
  Receive Date: 20250724
  Receipt Date: 20250724
  Transmission Date: 20251021
  Serious: Yes (Life-Threatening)
  Sender: DR REDDYS
  Company Number: None

PATIENT
  Age: 62 Year
  Sex: Female

DRUGS (3)
  1. HEPARIN [Suspect]
     Active Substance: HEPARIN SODIUM
     Indication: Thrombosis prophylaxis
  2. HEPARIN [Suspect]
     Active Substance: HEPARIN SODIUM
  3. HEPARIN [Suspect]
     Active Substance: HEPARIN SODIUM
     Dosage: THEREAFTER

REACTIONS (3)
  - Heparin-induced thrombocytopenia [Recovering/Resolving]
  - Deep vein thrombosis [Recovering/Resolving]
  - Vena cava thrombosis [Recovering/Resolving]
